FAERS Safety Report 11965131 (Version 1)
Quarter: 2016Q1

REPORT INFORMATION
  Report Type: Spontaneous
  Country: US (occurrence: US)
  Receive Date: 20160127
  Receipt Date: 20160127
  Transmission Date: 20160526
  Serious: Yes (Other)
  Sender: FDA-Public Use
  Company Number: US-SA-2016SA014670

PATIENT
  Age: 46 Year
  Sex: Female

DRUGS (15)
  1. ACTOS [Concomitant]
     Active Substance: PIOGLITAZONE HYDROCHLORIDE
  2. FLAXSEED [Concomitant]
     Active Substance: FLAX SEED
  3. FARXIGA [Concomitant]
     Active Substance: DAPAGLIFLOZIN PROPANEDIOL
  4. MISOPROSTOL. [Concomitant]
     Active Substance: MISOPROSTOL
  5. AUBAGIO [Suspect]
     Active Substance: TERIFLUNOMIDE
     Indication: MULTIPLE SCLEROSIS
     Route: 048
  6. LOSARTAN POTASSIUM. [Concomitant]
     Active Substance: LOSARTAN POTASSIUM
  7. NUVIGIL [Concomitant]
     Active Substance: ARMODAFINIL
  8. FISH OIL [Concomitant]
     Active Substance: FISH OIL
  9. OMEPRAZOLE. [Concomitant]
     Active Substance: OMEPRAZOLE
  10. ABILIFY [Concomitant]
     Active Substance: ARIPIPRAZOLE
  11. VITAMIN D [Concomitant]
     Active Substance: CHOLECALCIFEROL
  12. DULOXETINE HYDROCHLORIDE. [Concomitant]
     Active Substance: DULOXETINE HYDROCHLORIDE
  13. TIZANIDINE HYDROCHLORIDE. [Concomitant]
     Active Substance: TIZANIDINE HYDROCHLORIDE
  14. OXCARBAZEPINE. [Concomitant]
     Active Substance: OXCARBAZEPINE
  15. WELLBUTRIN [Concomitant]
     Active Substance: BUPROPION HYDROCHLORIDE

REACTIONS (4)
  - Bladder operation [Unknown]
  - Surgery [Unknown]
  - Balance disorder [Unknown]
  - Gait disturbance [Unknown]

NARRATIVE: CASE EVENT DATE: 201511
